FAERS Safety Report 5997928-8 (Version None)
Quarter: 2008Q4

REPORT INFORMATION
  Report Type: 
  Country: None (occurrence: None)
  Receive Date: 20081212
  Receipt Date: 20081125
  Transmission Date: 20090506
  Serious: No
  Sender: FDA-Public Use
  Company Number: US-ABBOTT-08P-163-0489976-00

PATIENT
  Sex: Female
  Weight: 41.768 kg

DRUGS (5)
  1. HUMIRA [Suspect]
     Indication: CROHN'S DISEASE
     Route: 058
     Dates: start: 20080929, end: 20081104
  2. HUMIRA [Suspect]
     Route: 058
     Dates: start: 20080915, end: 20080915
  3. HUMIRA [Suspect]
     Route: 058
     Dates: start: 20081104
  4. UNKNOWN BIRTH CONTROL PILLS [Concomitant]
     Indication: CONTRACEPTION
  5. BUDESONIDE [Concomitant]
     Indication: CROHN'S DISEASE
     Dates: end: 20081125

REACTIONS (2)
  - CROHN'S DISEASE [None]
  - INCORRECT DOSE ADMINISTERED [None]
